FAERS Safety Report 6339343-3 (Version None)
Quarter: 2009Q3

REPORT INFORMATION
  Report Type: 
  Country: None (occurrence: None)
  Receive Date: 20090903
  Receipt Date: 20090824
  Transmission Date: 20100115
  Serious: Yes (Hospitalization)
  Sender: FDA-Public Use
  Company Number: B0591057A

PATIENT
  Age: 7 Month
  Sex: Female

DRUGS (4)
  1. ZIDOVUDINE [Suspect]
     Indication: DRUG USE FOR UNKNOWN INDICATION
  2. ZIDOVUDINE [Suspect]
     Indication: HIV INFECTION
     Route: 065
  3. LAMIVUDINE [Suspect]
     Indication: HIV INFECTION
     Route: 065
  4. LOPINAVIR AND RITONAVIR [Suspect]
     Indication: HIV INFECTION
     Route: 065

REACTIONS (6)
  - CD4 LYMPHOCYTES DECREASED [None]
  - HILAR LYMPHADENOPATHY [None]
  - IMMUNE RECONSTITUTION SYNDROME [None]
  - PULMONARY TUBERCULOSIS [None]
  - RESPIRATORY DISORDER [None]
  - WEIGHT DECREASED [None]
